FAERS Safety Report 5900172-3 (Version None)
Quarter: 2008Q3

REPORT INFORMATION
  Report Type: 
  Country: None (occurrence: None)
  Receive Date: 20080924
  Receipt Date: 20080909
  Transmission Date: 20090109
  Serious: Yes (Other)
  Sender: FDA-Public Use
  Company Number: 1000001013

PATIENT
  Age: 51 Year
  Sex: Male

DRUGS (5)
  1. ESCITALOPRAM OXALATE [Suspect]
     Indication: ANXIETY
     Dosage: 10 MG, (10 MG, 1 IN 1 D),ORAL
     Route: 048
     Dates: start: 20080602, end: 20080717
  2. ESCITALOPRAM OXALATE [Suspect]
     Indication: DEPRESSION
     Dosage: 10 MG, (10 MG, 1 IN 1 D),ORAL
     Route: 048
     Dates: start: 20080602, end: 20080717
  3. DIFUR [Concomitant]
  4. ENBREL [Concomitant]
  5. LORAZEPAM [Concomitant]

REACTIONS (2)
  - AFFECT LABILITY [None]
  - INAPPROPRIATE AFFECT [None]
